FAERS Safety Report 25958453 (Version 1)
Quarter: 2025Q4

REPORT INFORMATION
  Report Type: Spontaneous
  Country: US (occurrence: US)
  Receive Date: 20251024
  Receipt Date: 20251024
  Transmission Date: 20260117
  Serious: Yes (Hospitalization, Other)
  Sender: NOVO NORDISK
  Company Number: US-NOVOPROD-1543273

PATIENT
  Sex: Female

DRUGS (1)
  1. LEVEMIR [Suspect]
     Active Substance: INSULIN DETEMIR
     Indication: Product used for unknown indication
     Dosage: 28 IU

REACTIONS (5)
  - Ovarian cancer [Recovered/Resolved]
  - Uterine cancer [Unknown]
  - Renal cancer [Unknown]
  - Renal failure [Unknown]
  - Gait inability [Unknown]

NARRATIVE: CASE EVENT DATE: 20130101
